FAERS Safety Report 6220032-0 (Version None)
Quarter: 2009Q2

REPORT INFORMATION
  Report Type: 
  Country: None (occurrence: None)
  Receive Date: 20090609
  Receipt Date: 20090528
  Transmission Date: 20091009
  Serious: Yes (Other)
  Sender: FDA-Public Use
  Company Number: PHEH2009US05400

PATIENT
  Sex: Male
  Weight: 63.492 kg

DRUGS (13)
  1. FOCALIN [Suspect]
     Dosage: UNK
     Dates: start: 20050101
  2. ADDERALL XR 20 [Suspect]
     Indication: ATTENTION DEFICIT/HYPERACTIVITY DISORDER
     Dosage: 20 MG, UNK
     Dates: start: 20040101
  3. ADDERALL XR 20 [Suspect]
     Dosage: 25 MG, UNK
  4. ADDERALL XR 20 [Suspect]
     Dosage: 30 MG, QD
     Route: 048
  5. VYVANSE [Suspect]
     Indication: ATTENTION DEFICIT/HYPERACTIVITY DISORDER
     Dosage: 50 MG, QD
     Route: 048
     Dates: start: 20080101, end: 20080101
  6. VYVANSE [Suspect]
     Dosage: NO TREATMENT
  7. VYVANSE [Suspect]
     Dosage: 50 MG, QD
  8. VYVANSE [Suspect]
     Dosage: 70 MG, QD
     Route: 048
  9. VYVANSE [Suspect]
     Dosage: NO TREATMENT
  10. VYVANSE [Suspect]
     Dosage: 50 MG, QD
  11. ANTIDEPRESSANTS [Concomitant]
     Indication: DEPRESSION
  12. BENZODIAZEPINES [Concomitant]
  13. AMPHETAMINE SULFATE [Concomitant]

REACTIONS (4)
  - ATTENTION DEFICIT/HYPERACTIVITY DISORDER [None]
  - DEPRESSION [None]
  - DISTURBANCE IN ATTENTION [None]
  - MOOD ALTERED [None]
